FAERS Safety Report 8283348-2 (Version None)
Quarter: 2012Q2

REPORT INFORMATION
  Report Type: 
  Country: None (occurrence: None)
  Receive Date: 20120413
  Receipt Date: 20120411
  Transmission Date: 20120825
  Serious: No
  Sender: FDA-Public Use
  Company Number: US-B.I. PHARMACEUTICALS,INC./RIDGEFIELD-2011-BP-28690BP

PATIENT
  Sex: Female

DRUGS (19)
  1. SPIRIVA [Suspect]
     Indication: CHRONIC OBSTRUCTIVE PULMONARY DISEASE
     Dosage: 18 MCG
     Route: 055
     Dates: start: 20110901
  2. DILTIAZEM HCL [Concomitant]
     Indication: ATRIAL FIBRILLATION
     Dosage: 180 MG
     Route: 048
     Dates: start: 20110301
  3. DILTIAZEM HCL [Concomitant]
     Indication: HYPERTENSION
  4. CALCIUM WITH VITAMIN D [Concomitant]
     Indication: PROPHYLAXIS
     Route: 048
     Dates: start: 20060101
  5. LOVAZA [Concomitant]
     Indication: SUPPLEMENTATION THERAPY
  6. PRADAXA [Suspect]
     Indication: ATRIAL FIBRILLATION
     Dosage: 300 MG
     Route: 048
     Dates: start: 20110101
  7. CALCIUM CARBONATE [Concomitant]
     Indication: SUPPLEMENTATION THERAPY
  8. DIGOXIN [Concomitant]
     Indication: ATRIAL FIBRILLATION
     Dosage: 250 MCG
     Route: 048
     Dates: start: 20110418, end: 20120301
  9. COZAAR [Concomitant]
     Indication: HYPERTENSION
     Dosage: 100 MG
     Route: 048
     Dates: start: 20110513
  10. MULTI-VITAMIN [Concomitant]
     Indication: SUPPLEMENTATION THERAPY
  11. SINGULAIR [Concomitant]
     Indication: CHRONIC OBSTRUCTIVE PULMONARY DISEASE
     Dosage: 10 MG
     Route: 048
     Dates: start: 20110901
  12. FISH OIL [Concomitant]
     Indication: SUPPLEMENTATION THERAPY
  13. ASCORBIC ACID [Concomitant]
     Indication: PROPHYLAXIS
     Dosage: 1000 MG
     Route: 048
     Dates: start: 19800101
  14. ASCORBIC ACID [Concomitant]
     Indication: SUPPLEMENTATION THERAPY
  15. ASPIRIN [Concomitant]
     Indication: PROPHYLAXIS
     Dosage: 81 MG
     Route: 048
     Dates: start: 20010101
  16. FISH OIL [Concomitant]
     Indication: PROPHYLAXIS
     Route: 048
     Dates: start: 20100101
  17. ZYRTEC [Concomitant]
     Indication: SEASONAL ALLERGY
     Route: 048
     Dates: start: 20100101
  18. SINGULAIR [Concomitant]
     Indication: SEASONAL ALLERGY
  19. VITAMIN D [Concomitant]
     Indication: SUPPLEMENTATION THERAPY

REACTIONS (5)
  - ORAL CANDIDIASIS [None]
  - HAEMOPTYSIS [None]
  - RASH PRURITIC [None]
  - RASH [None]
  - GINGIVAL BLEEDING [None]
